FAERS Safety Report 4622493-7 (Version None)
Quarter: 2005Q1

REPORT INFORMATION
  Report Type: 
  Country: None (occurrence: None)
  Receive Date: 20050325
  Receipt Date: 20050325
  Transmission Date: 20050727
  Serious: Yes (Hospitalization)
  Sender: FDA-Public Use
  Company Number: None

PATIENT
  Age: 43 Year
  Sex: Female

DRUGS (7)
  1. DEPAKENE [Suspect]
     Indication: BIPOLAR I DISORDER
     Dosage: PO 1000 MG HS 500 MG AM, 750 MG HS 500 MG AM
     Route: 048
     Dates: start: 20050127, end: 20050217
  2. DEPAKENE [Suspect]
     Indication: BIPOLAR I DISORDER
     Dosage: PO 1000 MG HS 500 MG AM, 750 MG HS 500 MG AM
     Route: 048
     Dates: start: 20050217, end: 20050223
  3. SEROQUEL [Concomitant]
  4. ZYPREXA [Concomitant]
  5. COGENTIN/HALDOL [Concomitant]
  6. RISPERDAL [Concomitant]
  7. PROLIXIN [Concomitant]

REACTIONS (4)
  - ABNORMAL BEHAVIOUR [None]
  - AMMONIA INCREASED [None]
  - CONFUSIONAL STATE [None]
  - SEDATION [None]
